FAERS Safety Report 4621017-8 (Version None)
Quarter: 2005Q1

REPORT INFORMATION
  Report Type: 
  Country: None (occurrence: None)
  Receive Date: 20050325
  Receipt Date: 20050314
  Transmission Date: 20050727
  Serious: Yes (Other)
  Sender: FDA-Public Use
  Company Number: GXKR2005GB00782

PATIENT
  Age: 18 Year
  Sex: Male

DRUGS (2)
  1. VERAPAMIL [Suspect]
     Indication: CLUSTER HEADACHE
     Dosage: 640-480 MG
     Dates: start: 20000201
  2. LITHIUM CARBONATE [Concomitant]

REACTIONS (7)
  - CLUSTER HEADACHE [None]
  - CONDITION AGGRAVATED [None]
  - DENTAL DISCOMFORT [None]
  - DENTAL PLAQUE [None]
  - GINGIVAL BLEEDING [None]
  - GINGIVAL HYPERPLASIA [None]
  - SYNCOPE [None]
